FAERS Safety Report 6259514-4 (Version None)
Quarter: 2009Q3

REPORT INFORMATION
  Report Type: 
  Country: None (occurrence: None)
  Receive Date: 20090708
  Receipt Date: 20090706
  Transmission Date: 20100115
  Serious: Yes (Other)
  Sender: FDA-Public Use
  Company Number: IT-BRISTOL-MYERS SQUIBB COMPANY-14684013

PATIENT
  Age: 55 Year
  Sex: Female

DRUGS (2)
  1. BARACLUDE [Suspect]
     Indication: HEPATITIS B
     Route: 048
  2. INTERFERON [Concomitant]

REACTIONS (3)
  - LARYNGEAL OEDEMA [None]
  - LIP OEDEMA [None]
  - RASH [None]
